FAERS Safety Report 13555204 (Version 2)
Quarter: 2017Q2

REPORT INFORMATION
  Report Type: Spontaneous
  Country: AT (occurrence: AT)
  Receive Date: 20170517
  Receipt Date: 20170526
  Transmission Date: 20170830
  Serious: Yes (Other)
  Sender: FDA-Public Use
  Company Number: AT-ENDO PHARMACEUTICALS INC-2017-002884

PATIENT
  Age: 64 Year
  Sex: Male

DRUGS (9)
  1. XIAPEX [Suspect]
     Active Substance: COLLAGENASE CLOSTRIDIUM HISTOLYTICUM
     Dosage: UNK (FIRST INJECTION OF SECOND CYCLE)
     Route: 026
     Dates: start: 20160830
  2. AMLODIPIN                          /00972401/ [Concomitant]
     Active Substance: AMLODIPINE BESYLATE
     Indication: PRODUCT USED FOR UNKNOWN INDICATION
     Dosage: 300 MG, UNKNOWN
     Route: 065
  3. XIAPEX [Suspect]
     Active Substance: COLLAGENASE CLOSTRIDIUM HISTOLYTICUM
     Dosage: UNK (SECOND INJECTION OF FIRST CYCLE)
     Route: 026
     Dates: start: 20160625
  4. XIAPEX [Suspect]
     Active Substance: COLLAGENASE CLOSTRIDIUM HISTOLYTICUM
     Dosage: UNK (FIRST INJECTION OF FOURTH CYCLE)
     Route: 026
     Dates: start: 20161202, end: 20161202
  5. XIAPEX [Suspect]
     Active Substance: COLLAGENASE CLOSTRIDIUM HISTOLYTICUM
     Dosage: UNK (FIRST INJECTION OF THIRD CYCLE)
     Route: 026
     Dates: start: 20161017
  6. XIAPEX [Suspect]
     Active Substance: COLLAGENASE CLOSTRIDIUM HISTOLYTICUM
     Dosage: UNK (SECOND INJECTION OF THIRD CYCLE)
     Route: 026
     Dates: start: 20161020
  7. XIAPEX [Suspect]
     Active Substance: COLLAGENASE CLOSTRIDIUM HISTOLYTICUM
     Indication: PEYRONIE^S DISEASE
     Dosage: UNK (FIRST INJECTION OF FIRST CYCLE)
     Route: 026
     Dates: start: 20160623
  8. BLOPRESS [Concomitant]
     Active Substance: CANDESARTAN CILEXETIL
     Indication: PRODUCT USED FOR UNKNOWN INDICATION
     Dosage: 16 MG, UNKNOWN
     Route: 065
  9. NOMEXOR [Concomitant]
     Active Substance: NEBIVOLOL HYDROCHLORIDE
     Indication: PRODUCT USED FOR UNKNOWN INDICATION
     Dosage: 5 MG, UNKNOWN
     Route: 065

REACTIONS (5)
  - Drug dose omission [Recovered/Resolved]
  - Penile pain [Recovered/Resolved]
  - Peyronie^s disease [Not Recovered/Not Resolved]
  - Condition aggravated [Not Recovered/Not Resolved]
  - Penile haemorrhage [Recovering/Resolving]

NARRATIVE: CASE EVENT DATE: 2016
